FAERS Safety Report 7951005 (Version 4)
Quarter: 2013Q1

REPORT INFORMATION
  Report Type: Spontaneous
  Country: US (occurrence: US)
  Receive Date: 20110519
  Receipt Date: 20130225
  Transmission Date: 20140127
  Serious: Yes (Hospitalization)
  Sender: FDA-Public Use
  Company Number: US-BIOGENIDEC-2011BI017904

PATIENT
  Age: 56 Year
  Sex: Male

DRUGS (10)
  1. TYSABRI [Suspect]
     Indication: MULTIPLE SCLEROSIS
     Route: 042
     Dates: start: 20090929
  2. PROVIGIL [Concomitant]
  3. VICODIN [Concomitant]
     Indication: PAIN
  4. FLOMAX [Concomitant]
  5. AMBIEN [Concomitant]
  6. XANAX [Concomitant]
     Indication: POST-TRAUMATIC STRESS DISORDER
  7. BACLOFEN [Concomitant]
     Indication: BACK PAIN
  8. PROZAC [Concomitant]
     Indication: DEPRESSION
  9. ATENOLOL [Concomitant]
  10. BUSPAR [Concomitant]
     Indication: POST-TRAUMATIC STRESS DISORDER

REACTIONS (3)
  - Diabetic ketoacidosis [Recovered/Resolved]
  - Depression [Not Recovered/Not Resolved]
  - Diabetes mellitus [Not Recovered/Not Resolved]
